FAERS Safety Report 21406080 (Version 1)
Quarter: 2022Q4

REPORT INFORMATION
  Report Type: Spontaneous
  Country: US (occurrence: None)
  Receive Date: 20221003
  Receipt Date: 20221003
  Transmission Date: 20230112
  Serious: Yes (Hospitalization)
  Sender: FDA-Public Use
  Company Number: None

PATIENT
  Sex: Male

DRUGS (2)
  1. HUMIRA [Suspect]
     Active Substance: ADALIMUMAB
     Indication: Crohn^s disease
     Dosage: OTHER QUANTITY : 40 MG/0.8ML ;?FREQUENCY : EVERY OTHER WEEK;?
     Route: 058
     Dates: start: 20160329
  2. HUMIRA [Suspect]
     Active Substance: ADALIMUMAB
     Dosage: OTHER QUANTITY : ONE PEN ;?FREQUENCY : EVERY OTHER WEEK;?
     Route: 058

REACTIONS (3)
  - Infection [None]
  - Product dose omission issue [None]
  - Abdominal pain [None]
